FAERS Safety Report 25852687 (Version 1)
Quarter: 2025Q3

REPORT INFORMATION
  Report Type: Spontaneous
  Country: US (occurrence: US)
  Receive Date: 20250926
  Receipt Date: 20250926
  Transmission Date: 20251020
  Serious: Yes (Other)
  Sender: MYLAN
  Company Number: US-MYLANLABS-2025M1081260

PATIENT
  Age: 34 Year
  Sex: Male

DRUGS (2)
  1. PROPRANOLOL [Interacting]
     Active Substance: PROPRANOLOL HYDROCHLORIDE
     Indication: Hypertension
  2. DOXAZOSIN [Concomitant]
     Active Substance: DOXAZOSIN MESYLATE
     Indication: Phaeochromocytoma

REACTIONS (2)
  - Paroxysmal sympathetic hyperactivity [Recovering/Resolving]
  - Drug-disease interaction [Recovering/Resolving]
